FAERS Safety Report 9425541 (Version 1)
Quarter: 2013Q3

REPORT INFORMATION
  Report Type: Spontaneous
  Country: US (occurrence: US)
  Receive Date: 20130729
  Receipt Date: 20130729
  Transmission Date: 20140515
  Serious: No
  Sender: FDA-Public Use
  Company Number: US-MYLANLABS-2012S1019917

PATIENT
  Sex: Female

DRUGS (3)
  1. LEVOTHYROXINE SODIUM TABLETS, USP [Suspect]
     Indication: HYPOTHYROIDISM
     Route: 048
     Dates: start: 20120712
  2. LEVOTHYROXINE SODIUM TABLETS, USP [Suspect]
     Indication: ALOPECIA
     Route: 048
     Dates: start: 20120712
  3. CALCIUM [Concomitant]
     Route: 048

REACTIONS (6)
  - Bone pain [Not Recovered/Not Resolved]
  - Arthralgia [Not Recovered/Not Resolved]
  - Adnexa uteri pain [Not Recovered/Not Resolved]
  - Alopecia [Not Recovered/Not Resolved]
  - Nausea [Not Recovered/Not Resolved]
  - Toothache [Not Recovered/Not Resolved]
